FAERS Safety Report 25580308 (Version 2)
Quarter: 2025Q3

REPORT INFORMATION
  Report Type: Spontaneous
  Country: JP (occurrence: JP)
  Receive Date: 20250718
  Receipt Date: 20250728
  Transmission Date: 20251021
  Serious: Yes (Hospitalization)
  Sender: ELI LILLY AND COMPANY
  Company Number: JP-ELI_LILLY_AND_COMPANY-JP202507015101

PATIENT
  Age: 21 Year
  Sex: Female

DRUGS (5)
  1. MOUNJARO [Suspect]
     Active Substance: TIRZEPATIDE
     Indication: Weight decreased
     Route: 058
     Dates: start: 20250707, end: 20250707
  2. MOUNJARO [Suspect]
     Active Substance: TIRZEPATIDE
     Indication: Weight decreased
     Route: 058
     Dates: start: 20250707, end: 20250707
  3. MOUNJARO [Suspect]
     Active Substance: TIRZEPATIDE
     Indication: Weight decreased
     Route: 058
     Dates: start: 20250707, end: 20250707
  4. MOUNJARO [Suspect]
     Active Substance: TIRZEPATIDE
     Indication: Weight decreased
     Route: 058
     Dates: start: 20250707, end: 20250707
  5. ETHINYL ESTRADIOL\NORGESTREL [Suspect]
     Active Substance: ETHINYL ESTRADIOL\NORGESTREL
     Indication: Product used for unknown indication
     Route: 048

REACTIONS (5)
  - Starvation ketoacidosis [Recovered/Resolved]
  - Hypoglycaemia [Recovered/Resolved]
  - Hypopituitarism [Unknown]
  - Starvation [Unknown]
  - Off label use [Unknown]

NARRATIVE: CASE EVENT DATE: 20250707
